FAERS Safety Report 9415117 (Version 1)
Quarter: 2013Q3

REPORT INFORMATION
  Report Type: Spontaneous
  Country: US (occurrence: US)
  Receive Date: 20130723
  Receipt Date: 20130723
  Transmission Date: 20140515
  Serious: Yes (Hospitalization, Other)
  Sender: FDA-Public Use
  Company Number: US-ACTAVIS-2013-12852

PATIENT
  Age: 4 Day
  Sex: Male

DRUGS (4)
  1. OXYCODONE (UNKNOWN) [Suspect]
     Indication: PAIN MANAGEMENT
     Dosage: 5 MG, SINGLE, THAT MORNING
     Route: 063
  2. OXYCODONE (UNKNOWN) [Suspect]
     Dosage: 10 MG, SINGLE, PREVIOUS EVENING
     Route: 063
  3. PERCOCET /00446701/ [Suspect]
     Indication: PAIN MANAGEMENT
     Dosage: UNKNOWN
     Route: 063
  4. IBUPROFEN [Concomitant]
     Indication: PAIN MANAGEMENT
     Dosage: UNKNOWN
     Route: 063

REACTIONS (3)
  - Toxicity to various agents [Recovered/Resolved]
  - Weight decrease neonatal [Unknown]
  - Exposure during breast feeding [Recovered/Resolved]
